FAERS Safety Report 8614224-0 (Version None)
Quarter: 2012Q3

REPORT INFORMATION
  Report Type: 
  Country: None (occurrence: None)
  Receive Date: 20120823
  Receipt Date: 20120813
  Transmission Date: 20120928
  Serious: No
  Sender: FDA-Public Use
  Company Number: DE-JNJFOC-20120606151

PATIENT
  Sex: Male

DRUGS (3)
  1. PALIPERIDONE [Suspect]
     Indication: SCHIZOPHRENIA
     Route: 030
     Dates: start: 20120131, end: 20120131
  2. PALIPERIDONE [Suspect]
     Route: 030
     Dates: start: 20120228
  3. PALIPERIDONE [Suspect]
     Route: 030
     Dates: start: 20120124, end: 20120124

REACTIONS (1)
  - INJECTION SITE NODULE [None]
